FAERS Safety Report 7537701-2 (Version None)
Quarter: 2011Q2

REPORT INFORMATION
  Report Type: 
  Country: None (occurrence: None)
  Receive Date: 20110603
  Receipt Date: 20110523
  Transmission Date: 20111010
  Serious: Yes (Hospitalization)
  Sender: FDA-Public Use
  Company Number: 1000020675

PATIENT
  Age: 49 Year
  Sex: Male
  Weight: 112 kg

DRUGS (4)
  1. PRAZEPAM (PRAZEPAM) (PRAZEPAM) [Concomitant]
  2. ALPRAZOLAM [Concomitant]
  3. NEOCODION (CODEINE, SULFOGAIACOL) (TABLETS) (CODEINE, SULFOGAIACOL) [Concomitant]
  4. ESCITALOPRAM [Suspect]
     Indication: DEPRESSION
     Dosage: 10 MG (10 MG, 1 IN 1 D), ORAL
     Route: 048
     Dates: start: 20101203, end: 20110105

REACTIONS (2)
  - RASH MACULO-PAPULAR [None]
  - DIABETIC KETOACIDOTIC HYPERGLYCAEMIC COMA [None]
